FAERS Safety Report 16710040 (Version 1)
Quarter: 2019Q3

REPORT INFORMATION
  Report Type: Spontaneous
  Country: US (occurrence: US)
  Receive Date: 20190701
  Receipt Date: 20190701
  Transmission Date: 20191004
  Serious: Yes (Death)
  Sender: FDA-Public Use
  Company Number: None

PATIENT
  Age: 54 Year
  Sex: Female

DRUGS (10)
  1. ATORVASTATIN [Concomitant]
     Active Substance: ATORVASTATIN
  2. OMEPRAZOLE. [Concomitant]
     Active Substance: OMEPRAZOLE
  3. LEVOTHYROXINE. [Concomitant]
     Active Substance: LEVOTHYROXINE
  4. CAPECITABINE 500MG [Suspect]
     Active Substance: CAPECITABINE
     Indication: BREAST CANCER
     Route: 048
     Dates: start: 20181119
  5. FENTANYL. [Concomitant]
     Active Substance: FENTANYL
  6. OXYCODONE [Concomitant]
     Active Substance: OXYCODONE
  7. CEFDINIR. [Concomitant]
     Active Substance: CEFDINIR
  8. PROCHIORPER [Concomitant]
  9. METOPROLOL SUCC [Concomitant]
     Active Substance: METOPROLOL SUCCINATE
  10. NITROFUR MAC [Concomitant]
     Active Substance: NITROFURANTOIN

REACTIONS (1)
  - Death [None]

NARRATIVE: CASE EVENT DATE: 20190616
